FAERS Safety Report 6395840-6 (Version None)
Quarter: 2009Q4

REPORT INFORMATION
  Report Type: 
  Country: None (occurrence: None)
  Receive Date: 20091007
  Receipt Date: 20090923
  Transmission Date: 20100525
  Serious: Yes (Other)
  Sender: FDA-Public Use
  Company Number: 230796J09USA

PATIENT
  Age: 27 Year
  Sex: Female
  Weight: 95 kg

DRUGS (5)
  1. REBIF [Suspect]
     Indication: MULTIPLE SCLEROSIS
     Dosage: NOT REPORTED
     Dates: start: 20040101, end: 20050101
  2. AMANTADINE HCL [Suspect]
     Dosage: NOT REPORTED
  3. DETROL LA [Suspect]
     Dosage: NOT REPORTED
  4. LEVOTHYROXINE (LEVOTHYROXINE /00068001/) [Concomitant]
  5. CALCIUM (CALCIUM-SANDOZ /00009901/) [Concomitant]

REACTIONS (4)
  - AMNIOTIC FLUID VOLUME DECREASED [None]
  - DRUG EXPOSURE DURING PREGNANCY [None]
  - PREGNANCY [None]
  - PREMATURE LABOUR [None]
